FAERS Safety Report 5643391-6 (Version None)
Quarter: 2008Q1

REPORT INFORMATION
  Report Type: 
  Country: None (occurrence: None)
  Receive Date: 20080228
  Receipt Date: 20080212
  Transmission Date: 20080703
  Serious: Yes (Death)
  Sender: FDA-Public Use
  Company Number: CA-BAYER-200813708GPV

PATIENT
  Sex: Male

DRUGS (12)
  1. ALEMTUZUMAB [Suspect]
     Indication: CHRONIC LYMPHOCYTIC LEUKAEMIA
     Route: 058
  2. ALEMTUZUMAB [Suspect]
     Route: 058
  3. ALEMTUZUMAB [Suspect]
     Route: 058
  4. ALEMTUZUMAB [Suspect]
     Route: 058
  5. ACYCLOVIR [Concomitant]
     Indication: ANTIVIRAL PROPHYLAXIS
  6. FAMCYCLOVIR [Concomitant]
  7. VALACYCLOVIR [Concomitant]
  8. FLUCONAZOLE [Concomitant]
     Indication: ANTIFUNGAL PROPHYLAXIS
  9. ACETAMINOPHEN [Concomitant]
     Indication: PROPHYLAXIS
  10. DIMENHYDRINATE [Concomitant]
  11. HYDROCORTISONE [Concomitant]
  12. MEPERIDINE [Concomitant]

REACTIONS (4)
  - ANAEMIA [None]
  - BONE MARROW FAILURE [None]
  - NEUTROPENIA [None]
  - THROMBOCYTOPENIA [None]
